FAERS Safety Report 24779261 (Version 1)
Quarter: 2024Q4

REPORT INFORMATION
  Report Type: Spontaneous
  Country: US (occurrence: US)
  Receive Date: 20241226
  Receipt Date: 20241226
  Transmission Date: 20250115
  Serious: No
  Sender: SANDOZ
  Company Number: US-Sandoz Group AG-00020510

PATIENT
  Age: 77 Year
  Sex: Female

DRUGS (1)
  1. ESTRADIOL [Suspect]
     Active Substance: ESTRADIOL
     Indication: Product used for unknown indication
     Dosage: 0.025 MG, Q2W
     Route: 062

REACTIONS (4)
  - Abdominal distension [Unknown]
  - Inflammation [Unknown]
  - Pain [Unknown]
  - Swelling [Unknown]
